FAERS Safety Report 5800588-X (Version None)
Quarter: 2008Q3

REPORT INFORMATION
  Report Type: 
  Country: None (occurrence: None)
  Receive Date: 20080703
  Receipt Date: 20080620
  Transmission Date: 20090109
  Serious: Yes (Death, Other)
  Sender: FDA-Public Use
  Company Number: CA-BAYER-200813667NA

PATIENT
  Age: 62 Year
  Sex: Female

DRUGS (3)
  1. TRASYLOL [Suspect]
     Indication: MITRAL VALVE REPLACEMENT
     Dosage: AS USED: 10000 KIU
     Dates: start: 20080131
  2. TRASYLOL [Suspect]
     Dates: start: 20080131
  3. COUMADIN [Concomitant]

REACTIONS (14)
  - CARDIAC ARREST [None]
  - CARDIOGENIC SHOCK [None]
  - CARDIOPULMONARY BYPASS [None]
  - DISSEMINATED INTRAVASCULAR COAGULATION [None]
  - HEPATIC FAILURE [None]
  - HEPATIC FIBROSIS [None]
  - HEPATIC NECROSIS [None]
  - LACTIC ACIDOSIS [None]
  - LEFT VENTRICULAR HYPERTROPHY [None]
  - MULTI-ORGAN FAILURE [None]
  - MYOCARDIAL INFARCTION [None]
  - PERITONEAL HAEMORRHAGE [None]
  - POST PROCEDURAL HAEMORRHAGE [None]
  - PULMONARY THROMBOSIS [None]
